FAERS Safety Report 18649880 (Version 6)
Quarter: 2021Q3

REPORT INFORMATION
  Report Type: Report from Study
  Country: CA (occurrence: CA)
  Receive Date: 20201222
  Receipt Date: 20210923
  Transmission Date: 20211014
  Serious: Yes (Disabling, Other)
  Sender: FDA-Public Use
  Company Number: CA-NALPROPION PHARMACEUTICALS INC.-2020-010701

PATIENT

DRUGS (5)
  1. CONTRAVE [Suspect]
     Active Substance: BUPROPION HYDROCHLORIDE\NALTREXONE HYDROCHLORIDE
     Indication: WEIGHT CONTROL
     Dosage: 90/8 MG, 1 TABLET IN THE MORNING
     Route: 048
     Dates: start: 20200702, end: 20200708
  2. VITAMINS [Concomitant]
     Active Substance: VITAMINS
     Indication: SUPPLEMENTATION THERAPY
     Dosage: 1 IN 1 D
     Route: 048
  3. CONTRAVE [Suspect]
     Active Substance: BUPROPION HYDROCHLORIDE\NALTREXONE HYDROCHLORIDE
     Dosage: 90/8 MG (1 DOSAGE FORMS,1 IN 1 D)
     Route: 048
     Dates: start: 20210906, end: 20210910
  4. CONTRAVE [Suspect]
     Active Substance: BUPROPION HYDROCHLORIDE\NALTREXONE HYDROCHLORIDE
     Dosage: 90/8 MG, 1 TABLET IN THE MORNING
     Route: 048
     Dates: start: 20200716, end: 2021
  5. CONTRAVE [Suspect]
     Active Substance: BUPROPION HYDROCHLORIDE\NALTREXONE HYDROCHLORIDE
     Dosage: 90/8 MG, 1 TABLET IN THE MORNING AND 1 TABLET IN THE EVENING
     Route: 048
     Dates: start: 20200709, end: 20200715

REACTIONS (31)
  - Cataract operation [Unknown]
  - Abdominal distension [Unknown]
  - Condition aggravated [Unknown]
  - Nausea [Recovered/Resolved]
  - Renal impairment [Unknown]
  - Sleep apnoea syndrome [Unknown]
  - Cystitis [Not Recovered/Not Resolved]
  - Anxiety [Recovered/Resolved]
  - Product expiration date issue [Unknown]
  - Therapy cessation [Unknown]
  - Arthralgia [Recovered/Resolved]
  - Tremor [Unknown]
  - Blood urine present [Recovered/Resolved]
  - Malaise [Recovered/Resolved]
  - Dry mouth [Not Recovered/Not Resolved]
  - Flatulence [Recovering/Resolving]
  - Abdominal pain upper [Recovering/Resolving]
  - Eructation [Recovered/Resolved]
  - Gait inability [Recovering/Resolving]
  - Diplopia [Recovering/Resolving]
  - Back pain [Unknown]
  - Appetite disorder [Not Recovered/Not Resolved]
  - Dyspnoea [Unknown]
  - Agitation [Recovering/Resolving]
  - Alopecia [Not Recovered/Not Resolved]
  - Loss of personal independence in daily activities [Recovering/Resolving]
  - Food craving [Not Recovered/Not Resolved]
  - Pain in extremity [Not Recovered/Not Resolved]
  - Stress [Unknown]
  - Constipation [Not Recovered/Not Resolved]
  - Blood creatinine increased [Recovering/Resolving]

NARRATIVE: CASE EVENT DATE: 2020
